FAERS Safety Report 19469788 (Version 1)
Quarter: 2021Q2

REPORT INFORMATION
  Report Type: Spontaneous
  Country: CA (occurrence: CA)
  Receive Date: 20210629
  Receipt Date: 20210629
  Transmission Date: 20210717
  Serious: Yes (Death)
  Sender: FDA-Public Use
  Company Number: CA-ROCHE-2859576

PATIENT
  Sex: Female

DRUGS (23)
  1. APO?AZATHIOPRINE [Concomitant]
     Active Substance: AZATHIOPRINE
  2. APO?ZOPICLONE [Concomitant]
     Active Substance: ZOPICLONE
  3. HYDROXYCHLOROQUINE [Concomitant]
     Active Substance: HYDROXYCHLOROQUINE
  4. LACTAID [Concomitant]
     Active Substance: LACTASE
  5. LEVEMIR [Concomitant]
     Active Substance: INSULIN DETEMIR
  6. METHADONE [Concomitant]
     Active Substance: METHADONE HYDROCHLORIDE
  7. MYCOPHENOLATE MOFETIL. [Concomitant]
     Active Substance: MYCOPHENOLATE MOFETIL
  8. RITUXIMAB. [Suspect]
     Active Substance: RITUXIMAB
     Indication: RHEUMATOID ARTHRITIS
     Route: 042
  9. ACETAMINOPHEN. [Concomitant]
     Active Substance: ACETAMINOPHEN
  10. CALCIUM [Concomitant]
     Active Substance: CALCIUM
  11. DIPHENHYDRAMINE. [Concomitant]
     Active Substance: DIPHENHYDRAMINE
  12. LACTULOSE. [Concomitant]
     Active Substance: LACTULOSE
  13. QUINAPRIL HYDROCHLORIDE. [Concomitant]
     Active Substance: QUINAPRIL HYDROCHLORIDE
  14. ATORVASTATIN CALCIUM. [Concomitant]
     Active Substance: ATORVASTATIN CALCIUM
  15. NOVORAPID [Concomitant]
     Active Substance: INSULIN ASPART
  16. SOLU?CORTEF [Concomitant]
     Active Substance: HYDROCORTISONE SODIUM SUCCINATE
  17. APO?PREDNISONE [Concomitant]
     Active Substance: PREDNISONE
  18. PMS?CETIRIZINE [Concomitant]
     Active Substance: CETIRIZINE HYDROCHLORIDE
  19. RISEDRONATE SODIUM. [Concomitant]
     Active Substance: RISEDRONATE SODIUM
  20. MAGNESIUM [Concomitant]
     Active Substance: MAGNESIUM
  21. NABILONE [Concomitant]
     Active Substance: NABILONE
  22. METHYLPREDNISOLONE. [Concomitant]
     Active Substance: METHYLPREDNISOLONE
  23. ZINC. [Concomitant]
     Active Substance: ZINC

REACTIONS (1)
  - Death [Fatal]
